FAERS Safety Report 7801634-4 (Version None)
Quarter: 2011Q4

REPORT INFORMATION
  Report Type: 
  Country: None (occurrence: None)
  Receive Date: 20111007
  Receipt Date: 20110929
  Transmission Date: 20120403
  Serious: Yes (Other)
  Sender: FDA-Public Use
  Company Number: US-US-EMD SERONO, INC.-7086647

PATIENT
  Sex: Female
  Weight: 84 kg

DRUGS (4)
  1. REBIF [Suspect]
     Indication: MULTIPLE SCLEROSIS
     Route: 058
     Dates: start: 20050101
  2. REBIF [Suspect]
     Route: 058
     Dates: start: 20080808
  3. ELAVIL [Concomitant]
     Indication: MIGRAINE
  4. NEURONTIN [Concomitant]
     Indication: PAIN

REACTIONS (3)
  - MIGRAINE [None]
  - OPTIC NEURITIS [None]
  - INJECTION SITE ERYTHEMA [None]
